FAERS Safety Report 10180142 (Version 1)
Quarter: 2014Q2

REPORT INFORMATION
  Report Type: Spontaneous
  Country: US (occurrence: US)
  Receive Date: 20140519
  Receipt Date: 20140519
  Transmission Date: 20141212
  Serious: No
  Sender: FDA-Public Use
  Company Number: US-AMGEN INC.-USASP2013089056

PATIENT
  Age: 76 Year
  Sex: Female

DRUGS (3)
  1. PROLIA [Suspect]
     Indication: OSTEOPOROSIS POSTMENOPAUSAL
     Dosage: UNK
     Route: 065
     Dates: start: 201305
  2. VITAMIN D                          /00107901/ [Concomitant]
     Dosage: 50000 UNK, QWK
     Route: 065
  3. MULTIVITAMIN                       /00097801/ [Concomitant]

REACTIONS (4)
  - Back pain [Recovering/Resolving]
  - Osteoarthritis [Unknown]
  - Diverticulum [Unknown]
  - Arthralgia [Recovering/Resolving]
